FAERS Safety Report 6231287-0 (Version None)
Quarter: 2009Q2

REPORT INFORMATION
  Report Type: 
  Country: None (occurrence: None)
  Receive Date: 20090616
  Receipt Date: 20090608
  Transmission Date: 20091009
  Serious: Yes (Other)
  Sender: FDA-Public Use
  Company Number: US-JNJCH-2009015784

PATIENT
  Age: 57 Year
  Sex: Male
  Weight: 92.1 kg

DRUGS (7)
  1. BENADRYL ALLERGY KAPGELS [Suspect]
     Indication: EYE PRURITUS
     Dosage: TEXT:10 KAPGELS A DAY FOR 4 DAYS, THEN 6
     Route: 048
  2. VICODIN [Concomitant]
     Indication: PAIN
     Dosage: TEXT:7.5 MG / 750 MG THREE TIMES DAILY
     Route: 065
  3. XANAX [Concomitant]
     Indication: NECK PAIN
     Dosage: TEXT:0.5 MG THREE TIMES DAILY
     Route: 065
  4. BENICAR [Concomitant]
     Indication: HYPERTENSION
     Dosage: TEXT:40 MG DAILY
     Route: 065
  5. DYNACIRC [Concomitant]
     Indication: HYPERTENSION
     Dosage: TEXT:10 MG DAILY
     Route: 065
  6. AMLODIPINE [Concomitant]
     Indication: HYPERTENSION
     Dosage: TEXT:10 MG DAILY
     Route: 065
  7. SENOKOT [Concomitant]
     Indication: CONSTIPATION
     Dosage: TEXT:8.6 MG TWO TO THREE TIMES DAILY
     Route: 065

REACTIONS (3)
  - CONSTIPATION [None]
  - HAEMOCHROMATOSIS [None]
  - LIVER DISORDER [None]
